FAERS Safety Report 17148653 (Version 1)
Quarter: 2019Q4

REPORT INFORMATION
  Report Type: Spontaneous
  Country: DE (occurrence: DE)
  Receive Date: 20191213
  Receipt Date: 20191213
  Transmission Date: 20200122
  Serious: Yes (Other)
  Sender: FDA-Public Use
  Company Number: DE-US-PROVELL PHARMACEUTICALS LLC-E2B_90073006

PATIENT
  Sex: Female

DRUGS (1)
  1. EUTHYROX [Suspect]
     Active Substance: LEVOTHYROXINE SODIUM
     Indication: THYROID DISORDER

REACTIONS (8)
  - Skin burning sensation [Recovered/Resolved]
  - Breast feeding [Recovered/Resolved]
  - Wrong technique in product usage process [Unknown]
  - Reaction to excipient [Recovered/Resolved]
  - Hypothyroidism [Recovered/Resolved]
  - Rash pustular [Recovered/Resolved]
  - Constipation [Recovered/Resolved]
  - Urticaria [Recovered/Resolved]
